FAERS Safety Report 21585276 (Version 1)
Quarter: 2022Q4

REPORT INFORMATION
  Report Type: Spontaneous
  Country: ES (occurrence: ES)
  Receive Date: 20221111
  Receipt Date: 20221111
  Transmission Date: 20230113
  Serious: Yes (Hospitalization)
  Sender: FDA-Public Use
  Company Number: None

PATIENT
  Age: 58 Year
  Sex: Male

DRUGS (4)
  1. HYDROXYCHLOROQUINE SULFATE [Suspect]
     Active Substance: HYDROXYCHLOROQUINE SULFATE
     Indication: COVID-19 pneumonia
     Dosage: FREQUENCY TIME: 1 DAY, DURATION: 5 DAYS, UNIT DOSE: 400 MG, HYDROXYCHLOROQUINE SULFATE (2143SU)
     Route: 065
     Dates: start: 20200329, end: 20200403
  2. SULFAMETHOXAZOLE\TRIMETHOPRIM [Suspect]
     Active Substance: SULFAMETHOXAZOLE\TRIMETHOPRIM
     Indication: COVID-19 pneumonia
     Dosage: FREQUENCY TIME : 48 HOURS, DURATION: 23 DAYS, UNIT DOSE: 1 DF, SEPTRIN FORTE 160 MG/800 MG TABLETS,
     Route: 065
     Dates: start: 20200403, end: 20200425
  3. LOPINAVIR\RITONAVIR [Suspect]
     Active Substance: LOPINAVIR\RITONAVIR
     Indication: COVID-19 pneumonia
     Dosage: FREQUENCY TIME : 1 DAY, DURATION: 19 DAYS, UNIT DOSE: 2 DF, LOPINAVIR/RITONAVIR ACCORD 200 MG/ 50 MG
     Route: 065
     Dates: start: 20200330, end: 20200417
  4. TEICOPLANIN [Suspect]
     Active Substance: TEICOPLANIN
     Indication: COVID-19 pneumonia
     Dosage: FREQUENCY TIME : 24 HOURS, DURATION: 6 DAYS, UNIT DOSE: 400 MG, TEICOPLANIN (2474A)
     Route: 065
     Dates: start: 20200329, end: 20200404

REACTIONS (2)
  - Acute generalised exanthematous pustulosis [Recovered/Resolved]
  - Aphthous ulcer [Recovered/Resolved]

NARRATIVE: CASE EVENT DATE: 20200418
